FAERS Safety Report 9494446 (Version 1)
Quarter: 2013Q3

REPORT INFORMATION
  Report Type: Spontaneous
  Country: US (occurrence: None)
  Receive Date: 20130828
  Receipt Date: 20130828
  Transmission Date: 20140515
  Serious: Yes (Death)
  Sender: FDA-Public Use
  Company Number: BR13-271-AE

PATIENT
  Age: 22 Year
  Sex: Male

DRUGS (1)
  1. BUPRENORPHINE/ NALOXONE DIHYDRATE [Suspect]
     Route: 048

REACTIONS (1)
  - Alcohol poisoning [None]
